FAERS Safety Report 10232675 (Version 1)
Quarter: 2014Q2

REPORT INFORMATION
  Report Type: Spontaneous
  Country: US (occurrence: None)
  Receive Date: 20140506
  Receipt Date: 20140506
  Transmission Date: 20141212
  Serious: Yes (Other)
  Sender: FDA-Public Use
  Company Number: 1227265

PATIENT
  Age: 86 Year
  Sex: Male
  Weight: 99.79 kg

DRUGS (3)
  1. AVASTIN (BEVACIZUMAB) [Suspect]
     Indication: AGE-RELATED MACULAR DEGENERATION
     Dosage: INTRAVITREAL
     Route: 031
  2. AVASTIN (BEVACIZUMAB) [Suspect]
     Indication: OFF LABEL USE
     Dosage: INTRAVITREAL
     Route: 031
  3. LUCENTIS [Suspect]
     Indication: AGE-RELATED MACULAR DEGENERATION
     Dosage: (0.5 MG, 1 IN 8 WK), INTRAVITREAL
     Dates: start: 20130507

REACTIONS (4)
  - Ocular hyperaemia [None]
  - Eye pain [None]
  - Vision blurred [None]
  - Rhinorrhoea [None]
